FAERS Safety Report 10051384 (Version 2)
Quarter: 2014Q2

REPORT INFORMATION
  Report Type: Spontaneous
  Country: US (occurrence: US)
  Receive Date: 20140401
  Receipt Date: 20140617
  Transmission Date: 20141212
  Serious: Yes (Hospitalization)
  Sender: FDA-Public Use
  Company Number: US-PFIZER INC-2014091658

PATIENT
  Age: 10 Year
  Sex: Male

DRUGS (2)
  1. QUILLIVANT XR [Suspect]
     Indication: ATTENTION DEFICIT/HYPERACTIVITY DISORDER
     Dosage: 50 MG, UNK
     Dates: start: 20140328, end: 201403
  2. QUILLIVANT XR [Suspect]
     Dosage: 10 MG, UNK
     Route: 048
     Dates: start: 201403

REACTIONS (4)
  - Insomnia [Recovered/Resolved]
  - Decreased appetite [Recovered/Resolved]
  - Agitation [Recovered/Resolved]
  - Tachycardia [Recovered/Resolved]
